FAERS Safety Report 5528034-4 (Version None)
Quarter: 2007Q4

REPORT INFORMATION
  Report Type: 
  Country: None (occurrence: None)
  Receive Date: 20071128
  Receipt Date: 20071119
  Transmission Date: 20080405
  Serious: Yes (Death)
  Sender: FDA-Public Use
  Company Number: NL-PURDUE-GBR_2007_0003490

PATIENT
  Age: 19 Year
  Sex: Male

DRUGS (2)
  1. OXYCONTIN [Suspect]
     Indication: LUNG NEOPLASM MALIGNANT
     Dosage: 30 MG, BID
     Route: 065
     Dates: start: 20050502
  2. SEVREDOL TABLETS 10 MG [Concomitant]
     Indication: DRUG USE FOR UNKNOWN INDICATION
     Dosage: 10 MG, DAILY
     Route: 065

REACTIONS (2)
  - LUNG NEOPLASM MALIGNANT [None]
  - MALIGNANT NEOPLASM PROGRESSION [None]
